FAERS Safety Report 10489936 (Version 1)
Quarter: 2014Q3

REPORT INFORMATION
  Report Type: Spontaneous
  Country: US (occurrence: None)
  Receive Date: 20140815
  Receipt Date: 20140815
  Transmission Date: 20150326
  Serious: Yes (Hospitalization, Other)
  Sender: FDA-Public Use
  Company Number: ADR-2013-01400

PATIENT
  Age: 51 Year
  Sex: Male

DRUGS (1)
  1. LIORESAL [Suspect]
     Active Substance: BACLOFEN
     Indication: MUSCLE SPASTICITY
     Dosage: 289 MCG/DAY

REACTIONS (6)
  - Pruritus [None]
  - Hyperhidrosis [None]
  - Insomnia [None]
  - Malaise [None]
  - Drug withdrawal syndrome [None]
  - Muscle spasticity [None]
